FAERS Safety Report 6099050-1 (Version None)
Quarter: 2009Q1

REPORT INFORMATION
  Report Type: 
  Country: None (occurrence: None)
  Receive Date: 20090302
  Receipt Date: 20090216
  Transmission Date: 20090719
  Serious: Yes (Death)
  Sender: FDA-Public Use
  Company Number: KR-TEVA-185794ISR

PATIENT
  Age: 60 Year
  Sex: Male

DRUGS (2)
  1. CISPLATIN [Suspect]
     Indication: LUNG NEOPLASM MALIGNANT
  2. DOCETAXEL [Suspect]
     Indication: LUNG NEOPLASM MALIGNANT

REACTIONS (1)
  - AORTO-OESOPHAGEAL FISTULA [None]
